FAERS Safety Report 19372232 (Version 1)
Quarter: 2021Q2

REPORT INFORMATION
  Report Type: Spontaneous
  Country: US (occurrence: US)
  Receive Date: 20210603
  Receipt Date: 20210603
  Transmission Date: 20210717
  Serious: Yes (Hospitalization)
  Sender: FDA-Public Use
  Company Number: None

PATIENT
  Age: 60 Year
  Sex: Female

DRUGS (2)
  1. OPSUMIT [Suspect]
     Active Substance: MACITENTAN
     Indication: PULMONARY ARTERIAL HYPERTENSION
     Route: 048
     Dates: start: 20181108
  2. OPSUMIT [Suspect]
     Active Substance: MACITENTAN
     Indication: HERITABLE PULMONARY ARTERIAL HYPERTENSION
     Route: 048
     Dates: start: 20181108

REACTIONS (5)
  - Dyspnoea [None]
  - Atrial fibrillation [None]
  - Wheezing [None]
  - Cough [None]
  - Drug ineffective [None]

NARRATIVE: CASE EVENT DATE: 20210515
